FAERS Safety Report 7400122-7 (Version None)
Quarter: 2011Q2

REPORT INFORMATION
  Report Type: 
  Country: None (occurrence: None)
  Receive Date: 20110407
  Receipt Date: 20100302
  Transmission Date: 20111010
  Serious: No
  Sender: FDA-Public Use
  Company Number: US-KINGPHARMUSA00001-K201000265

PATIENT
  Sex: Male
  Weight: 77.098 kg

DRUGS (4)
  1. SKELAXIN [Suspect]
     Indication: MUSCLE SPASMS
     Dosage: 800 MG, Q4H, PRN
     Route: 048
     Dates: start: 20100101, end: 20100226
  2. OMEPRAZOLE [Concomitant]
  3. ASPIRIN [Concomitant]
     Dosage: 200 MG, BID
  4. SKELAXIN [Suspect]
     Dosage: 800 MG, Q5H, PRN
     Dates: start: 20100227

REACTIONS (3)
  - CONSTIPATION [None]
  - DRUG INEFFECTIVE [None]
  - WRONG DRUG ADMINISTERED [None]
